FAERS Safety Report 4489539-0 (Version None)
Quarter: 2004Q4

REPORT INFORMATION
  Report Type: 
  Country: None (occurrence: None)
  Receive Date: 20041025
  Receipt Date: 20041013
  Transmission Date: 20050328
  Serious: Yes (Hospitalization)
  Sender: FDA-Public Use
  Company Number: 2004077833

PATIENT
  Age: 1 Month
  Sex: Male
  Weight: 8.6183 kg

DRUGS (1)
  1. INFANT'S PEDIACARE DECONGESTANT AND COUGH DROPS (DEXTROMETHORPHAN, PSE [Suspect]
     Indication: RESPIRATORY SYNCYTIAL VIRUS INFECTION
     Dosage: ORAL
     Route: 048
     Dates: start: 20040101

REACTIONS (1)
  - OXYGEN SUPPLEMENTATION [None]
